FAERS Safety Report 17258762 (Version 1)
Quarter: 2020Q1

REPORT INFORMATION
  Report Type: Report from Study
  Country: US (occurrence: US)
  Receive Date: 20200110
  Receipt Date: 20200110
  Transmission Date: 20200409
  Serious: Yes (Death, Other)
  Sender: FDA-Public Use
  Company Number: US-BAUSCH-BL-2019-066778

PATIENT
  Age: 83 Year
  Sex: Male

DRUGS (1)
  1. TARGRETIN [Suspect]
     Active Substance: BEXAROTENE
     Indication: LYMPHOMA
     Route: 048
     Dates: start: 20191108, end: 20191203

REACTIONS (4)
  - Sepsis [Fatal]
  - Deafness [Unknown]
  - Alopecia [Unknown]
  - Seizure [Unknown]

NARRATIVE: CASE EVENT DATE: 201911
